FAERS Safety Report 13103454 (Version 1)
Quarter: 2017Q1

REPORT INFORMATION
  Report Type: Spontaneous
  Country: US (occurrence: US)
  Receive Date: 20170111
  Receipt Date: 20170111
  Transmission Date: 20170428
  Serious: No
  Sender: FDA-Public Use
  Company Number: US-ASTRAZENECA-2017SE01450

PATIENT
  Age: 62 Year
  Sex: Female
  Weight: 113 kg

DRUGS (3)
  1. NEXIUM 24HR [Suspect]
     Active Substance: ESOMEPRAZOLE MAGNESIUM
     Indication: OESOPHAGEAL ACHALASIA
     Dosage: 40.0MG UNKNOWN
     Route: 048
     Dates: start: 2015
  2. NEXIUM 24HR [Suspect]
     Active Substance: ESOMEPRAZOLE MAGNESIUM
     Indication: OESOPHAGEAL ACHALASIA
     Dosage: 23.5 MG TWO CAPSULES ONCE A DAY UNKNOWN
     Route: 048
     Dates: start: 2015
  3. PRILOSEC [Suspect]
     Active Substance: OMEPRAZOLE MAGNESIUM
     Indication: OESOPHAGEAL ACHALASIA
     Route: 048

REACTIONS (3)
  - Condition aggravated [Unknown]
  - Aphonia [Not Recovered/Not Resolved]
  - Drug ineffective [Unknown]

NARRATIVE: CASE EVENT DATE: 2015
